FAERS Safety Report 7123946-2 (Version None)
Quarter: 2010Q4

REPORT INFORMATION
  Report Type: 
  Country: None (occurrence: None)
  Receive Date: 20101126
  Receipt Date: 20101119
  Transmission Date: 20110411
  Serious: Yes (Other)
  Sender: FDA-Public Use
  Company Number: US-PFIZER INC-2010141075

PATIENT
  Sex: Male
  Weight: 99.8 kg

DRUGS (2)
  1. CHANTIX [Suspect]
     Indication: SMOKING CESSATION THERAPY
     Dosage: 0.5 MG, 1X/DAY
     Route: 048
     Dates: start: 20101031, end: 20101101
  2. PIROXICAM [Concomitant]
     Indication: SWELLING
     Dosage: UNK MG, UNK
     Route: 048

REACTIONS (4)
  - INSOMNIA [None]
  - SUICIDAL IDEATION [None]
  - TACHYPHRENIA [None]
  - THINKING ABNORMAL [None]
